FAERS Safety Report 7321774-6 (Version None)
Quarter: 2011Q1

REPORT INFORMATION
  Report Type: 
  Country: None (occurrence: None)
  Receive Date: 20110228
  Receipt Date: 20101210
  Transmission Date: 20110831
  Serious: No
  Sender: FDA-Public Use
  Company Number: US-BAYER-2010-006542

PATIENT
  Sex: Female
  Weight: 63 kg

DRUGS (6)
  1. TIGAN [Concomitant]
     Dosage: 300 MG, QD
  2. AVELOX [Suspect]
     Indication: TUBERCULOSIS
     Dosage: 400 MG, QD MONDAY TO FRIDAY
     Route: 048
     Dates: start: 20100401, end: 20101209
  3. ETHAMBUTOL HYDROCHLORIDE [Concomitant]
     Dosage: 1200 MG, QD MONDAY TO FRIDAY
  4. SEROMYCIN [Concomitant]
     Dosage: 500 MG, UNK
  5. VITAMIN B6 [Concomitant]
     Dosage: 100 MG, UNK
  6. YARINA [Concomitant]
     Indication: CONTRACEPTION
     Dosage: UNK
     Route: 048
     Dates: start: 20101101

REACTIONS (3)
  - JOINT SWELLING [None]
  - ARTHRALGIA [None]
  - SLEEP DISORDER [None]
